FAERS Safety Report 7498968-2 (Version None)
Quarter: 2011Q2

REPORT INFORMATION
  Report Type: 
  Country: None (occurrence: None)
  Receive Date: 20110524
  Receipt Date: 20110517
  Transmission Date: 20111010
  Serious: Yes (Hospitalization)
  Sender: FDA-Public Use
  Company Number: CA-CELGENEUS-028-CCAZA-11050733

PATIENT
  Sex: Female
  Weight: 61 kg

DRUGS (9)
  1. LACTULOSE [Concomitant]
     Route: 065
     Dates: start: 20110502
  2. AZACITIDINE [Suspect]
     Dosage: 75 MILLIGRAM/SQ. METER
     Route: 058
     Dates: start: 20110502, end: 20110504
  3. ONDANSETRON [Concomitant]
     Route: 065
     Dates: start: 20110502
  4. COLACE [Concomitant]
     Route: 065
     Dates: start: 20110401
  5. VITAMIN D [Concomitant]
     Route: 065
     Dates: start: 20090101
  6. SYNTHROID [Concomitant]
     Route: 065
     Dates: start: 20080101
  7. ATENOLOL AND CHLORTHALIDONE [Concomitant]
     Route: 065
     Dates: end: 20110414
  8. METOCLOPRAMIDE [Concomitant]
     Route: 065
     Dates: start: 20110502
  9. SENOKOT [Concomitant]
     Route: 065
     Dates: start: 20110502

REACTIONS (1)
  - PERICARDITIS [None]
